FAERS Safety Report 4449689-1 (Version None)
Quarter: 2004Q3

REPORT INFORMATION
  Report Type: 
  Country: None (occurrence: None)
  Receive Date: 20040913
  Receipt Date: 20040913
  Transmission Date: 20050211
  Serious: No
  Sender: FDA-Public Use
  Company Number: None

PATIENT
  Sex: Male
  Weight: 88.3 kg

DRUGS (2)
  1. REMICADE [Suspect]
     Indication: RHEUMATOID ARTHRITIS
     Dosage: 350 MG ONCE IV
     Route: 042
     Dates: start: 20040802
  2. NORMAL SALINE 250 ML [Suspect]
     Dosage: 400 MG ONCE IV
     Route: 042
     Dates: start: 20040910

REACTIONS (7)
  - ERYTHEMA [None]
  - HEADACHE [None]
  - HOT FLUSH [None]
  - INFUSION RELATED REACTION [None]
  - PRURITUS [None]
  - RESPIRATORY DISORDER [None]
  - URTICARIA [None]
